FAERS Safety Report 14551349 (Version 1)
Quarter: 2018Q1

REPORT INFORMATION
  Report Type: Spontaneous
  Country: US (occurrence: US)
  Receive Date: 20180220
  Receipt Date: 20180220
  Transmission Date: 20180509
  Serious: Yes (Other)
  Sender: FDA-Public Use
  Company Number: US-ROCHE-2069810

PATIENT
  Sex: Female
  Weight: 93.07 kg

DRUGS (2)
  1. TAMIFLU [Suspect]
     Active Substance: OSELTAMIVIR PHOSPHATE
     Indication: MALAISE
     Dosage: FOR FIVE DAYS TOTAL
     Route: 048
  2. TAMIFLU [Suspect]
     Active Substance: OSELTAMIVIR PHOSPHATE
     Indication: INFLUENZA

REACTIONS (6)
  - Consciousness fluctuating [Recovered/Resolved]
  - Hypothermia [Recovered/Resolved]
  - Body temperature decreased [Unknown]
  - Gastrointestinal inflammation [Recovered/Resolved]
  - Gastritis [Recovered/Resolved]
  - Blood potassium decreased [Recovered/Resolved]
